FAERS Safety Report 9359329 (Version 1)
Quarter: 2013Q2

REPORT INFORMATION
  Report Type: Spontaneous
  Country: AU (occurrence: AU)
  Receive Date: 20130620
  Receipt Date: 20130620
  Transmission Date: 20140414
  Serious: Yes (Death, Other)
  Sender: FDA-Public Use
  Company Number: PHHY2013AU062684

PATIENT
  Age: 54 Year
  Sex: Male

DRUGS (2)
  1. CARBOPLATIN [Suspect]
     Indication: NEUROENDOCRINE TUMOUR
  2. ETOPOSIDE [Suspect]
     Indication: NEUROENDOCRINE TUMOUR
     Dosage: 100 MG/M2

REACTIONS (9)
  - Death [Fatal]
  - Disseminated intravascular coagulation [Unknown]
  - Angina pectoris [Unknown]
  - General physical health deterioration [Unknown]
  - Dyspnoea [Not Recovered/Not Resolved]
  - Haemorrhage [Unknown]
  - Fatigue [Unknown]
  - Haematuria [Unknown]
  - Contusion [Unknown]
